FAERS Safety Report 7462807-6 (Version None)
Quarter: 2011Q2

REPORT INFORMATION
  Report Type: 
  Country: None (occurrence: None)
  Receive Date: 20110506
  Receipt Date: 20110421
  Transmission Date: 20111010
  Serious: Yes (Other)
  Sender: FDA-Public Use
  Company Number: AT-JNJFOC-20110411914

PATIENT
  Age: 31 Year
  Sex: Female

DRUGS (1)
  1. LISTERINE TOTAL CARE SENSITIVE [Suspect]
     Indication: DENTAL DISORDER PROPHYLAXIS
     Route: 048

REACTIONS (2)
  - GLOSSODYNIA [None]
  - TONGUE BLISTERING [None]
